FAERS Safety Report 10583403 (Version 2)
Quarter: 2014Q4

REPORT INFORMATION
  Report Type: Spontaneous
  Country: US (occurrence: US)
  Receive Date: 20141114
  Receipt Date: 20141202
  Transmission Date: 20150529
  Serious: Yes (Hospitalization, Other)
  Sender: FDA-Public Use
  Company Number: US-009507513-1411USA005196

PATIENT
  Sex: Female

DRUGS (5)
  1. PEGINTRON [Suspect]
     Active Substance: PEGINTERFERON ALFA-2B
     Indication: HEPATITIS C
     Dosage: INJECTION/ THREE TIMES A WEEK
     Dates: start: 2000
  2. ALPRAZOLAM. [Concomitant]
     Active Substance: ALPRAZOLAM
     Dosage: UNK
  3. OXYCODONE [Concomitant]
     Active Substance: OXYCODONE
     Dosage: UNK
  4. DOXEPIN HYDROCHLORIDE. [Concomitant]
     Active Substance: DOXEPIN HYDROCHLORIDE
     Dosage: UNK
  5. REBETOL [Suspect]
     Active Substance: RIBAVIRIN
     Dosage: UNK
     Route: 048

REACTIONS (9)
  - Pain [Unknown]
  - Cerebrovascular accident [Unknown]
  - Hepatitis C [Unknown]
  - Emotional distress [Unknown]
  - Abdominal discomfort [Unknown]
  - Fatigue [Unknown]
  - Extrasystoles [Unknown]
  - Arthralgia [Unknown]
  - Eating disorder [Unknown]

NARRATIVE: CASE EVENT DATE: 2000
